FAERS Safety Report 24740308 (Version 1)
Quarter: 2024Q4

REPORT INFORMATION
  Report Type: Spontaneous
  Country: US (occurrence: US)
  Receive Date: 20241216
  Receipt Date: 20241216
  Transmission Date: 20250114
  Serious: No
  Sender: ENDO
  Company Number: ENDB24-00066

PATIENT
  Age: 70 Year
  Sex: Male

DRUGS (1)
  1. XIAFLEX [Suspect]
     Active Substance: COLLAGENASE CLOSTRIDIUM HISTOLYTICUM
     Indication: Peyronie^s disease
     Dosage: UNK UNKNOWN, UNKNOWN (FIRST INJECTION)
     Route: 051
     Dates: start: 20240108

REACTIONS (2)
  - Haematoma [Unknown]
  - Penile size reduced [Unknown]

NARRATIVE: CASE EVENT DATE: 20240108
